FAERS Safety Report 9265596 (Version 2)
Quarter: 2013Q3

REPORT INFORMATION
  Report Type: Spontaneous
  Country: US (occurrence: US)
  Receive Date: 20130501
  Receipt Date: 20130814
  Transmission Date: 20140515
  Serious: Yes (Disabling)
  Sender: FDA-Public Use
  Company Number: US-009507513-1304USA017109

PATIENT
  Age: 44 Year
  Sex: Male

DRUGS (2)
  1. PROPECIA [Suspect]
     Indication: ANDROGENETIC ALOPECIA
     Dosage: 1 MG, UNK
     Route: 048
     Dates: start: 2011
  2. FINASTERIDE [Suspect]
     Indication: ANDROGENETIC ALOPECIA
     Dosage: 5 MG, UNK
     Dates: start: 2011

REACTIONS (4)
  - Cognitive disorder [Not Recovered/Not Resolved]
  - Sexual dysfunction [Not Recovered/Not Resolved]
  - Sexual dysfunction [Not Recovered/Not Resolved]
  - Depression [Not Recovered/Not Resolved]
